FAERS Safety Report 6280023-0 (Version None)
Quarter: 2009Q3

REPORT INFORMATION
  Report Type: 
  Country: None (occurrence: None)
  Receive Date: 20090723
  Receipt Date: 20090723
  Transmission Date: 20100115
  Serious: No
  Sender: FDA-Public Use
  Company Number: US-B.I. PHARMACEUTICALS,INC./RIDGEFIELD-2009-BP-06286BP

PATIENT

DRUGS (5)
  1. SPIRIVA [Suspect]
     Indication: CHRONIC OBSTRUCTIVE PULMONARY DISEASE
     Dosage: 18 MCG
     Route: 055
     Dates: start: 20080101
  2. ATENOLOL [Concomitant]
     Indication: CARDIAC DISORDER
     Dosage: 25 MG
     Route: 048
  3. SIMVASTATIN [Concomitant]
     Indication: BLOOD CHOLESTEROL INCREASED
     Dosage: 80 MG
     Route: 048
  4. AMITRIPTYLINE HCL [Concomitant]
     Indication: SLEEP DISORDER
     Dosage: 50 MG
  5. FLUOSENNE [Concomitant]
     Dosage: 20 MG

REACTIONS (3)
  - CHOKING SENSATION [None]
  - COUGH [None]
  - HYPOAESTHESIA ORAL [None]
